FAERS Safety Report 14723330 (Version 1)
Quarter: 2018Q2

REPORT INFORMATION
  Report Type: Spontaneous
  Country: DK (occurrence: DK)
  Receive Date: 20180405
  Receipt Date: 20180405
  Transmission Date: 20180711
  Serious: Yes (Life-Threatening)
  Sender: FDA-Public Use
  Company Number: DK-ROCHE-2096082

PATIENT
  Age: 59 Year
  Sex: Male

DRUGS (2)
  1. ROACTEMRA [Suspect]
     Active Substance: TOCILIZUMAB
     Indication: RHEUMATOID ARTHRITIS
     Dosage: STYRKE: 162 MG.
     Route: 058
     Dates: start: 20170524, end: 201711
  2. SILDENAFIL. [Concomitant]
     Active Substance: SILDENAFIL
     Indication: ERECTILE DYSFUNCTION
     Route: 048
     Dates: start: 20170913

REACTIONS (3)
  - Diverticular perforation [Recovered/Resolved with Sequelae]
  - Weight decreased [Unknown]
  - Colostomy [Not Recovered/Not Resolved]

NARRATIVE: CASE EVENT DATE: 20171115
